FAERS Safety Report 26152913 (Version 1)
Quarter: 2025Q4

REPORT INFORMATION
  Report Type: Spontaneous
  Country: US (occurrence: US)
  Receive Date: 20251214
  Receipt Date: 20251214
  Transmission Date: 20260118
  Serious: Yes (Other)
  Sender: UNICHEM
  Company Number: US-UNICHEM LABORATORIES LIMITED-UNI-2025-US-004112

PATIENT

DRUGS (1)
  1. QUETIAPINE [Suspect]
     Active Substance: QUETIAPINE
     Indication: Sleep disorder therapy
     Dosage: 500 MILLIGRAM
     Route: 065

REACTIONS (4)
  - Electrocardiogram ST segment elevation [Recovering/Resolving]
  - Overdose [Unknown]
  - Dizziness [Unknown]
  - Fall [Unknown]
